FAERS Safety Report 8305021-4 (Version None)
Quarter: 2012Q2

REPORT INFORMATION
  Report Type: 
  Country: None (occurrence: None)
  Receive Date: 20120423
  Receipt Date: 20120418
  Transmission Date: 20120825
  Serious: Yes (Hospitalization, Other)
  Sender: FDA-Public Use
  Company Number: DE-ROCHE-778448

PATIENT
  Sex: Male
  Weight: 74 kg

DRUGS (4)
  1. PHENPROCOUMON AND PHENPROCOUMON [Suspect]
     Indication: PRODUCT USED FOR UNKNOWN INDICATION
     Route: 065
  2. AVASTIN [Suspect]
     Dosage: CYCLE 31
     Route: 042
     Dates: start: 20110331, end: 20110331
  3. INTERFERON [Suspect]
     Indication: METASTATIC RENAL CELL CARCINOMA
     Route: 065
     Dates: start: 20100101, end: 20100201
  4. AVASTIN [Suspect]
     Indication: METASTATIC RENAL CELL CARCINOMA
     Dosage: CYCLES 1-30
     Route: 042

REACTIONS (3)
  - ATRIAL FIBRILLATION [None]
  - HAEMOPTYSIS [None]
  - DEPRESSION [None]
